FAERS Safety Report 6652789-9 (Version None)
Quarter: 2010Q1

REPORT INFORMATION
  Report Type: 
  Country: None (occurrence: None)
  Receive Date: 20100326
  Receipt Date: 20100316
  Transmission Date: 20100710
  Serious: Yes (Other)
  Sender: FDA-Public Use
  Company Number: GB-JNJFOC-20100305039

PATIENT
  Sex: Male
  Weight: 100 kg

DRUGS (11)
  1. REMICADE [Suspect]
     Indication: RHEUMATOID ARTHRITIS
     Route: 042
  2. SULPHASALAZINE [Concomitant]
  3. METHOTREXATE [Concomitant]
  4. PREDNISOLONE [Concomitant]
  5. AMLODIPINE [Concomitant]
  6. CODEINE SULFATE [Concomitant]
  7. DICLOFENAC [Concomitant]
  8. FOLIC ACID [Concomitant]
  9. FOSINOPRIL SODIUM [Concomitant]
  10. INHALERS [Concomitant]
  11. ACETAMINOPHEN [Concomitant]

REACTIONS (2)
  - BASAL CELL CARCINOMA [None]
  - RECURRENT CANCER [None]
